FAERS Safety Report 6166296-3 (Version None)
Quarter: 2009Q2

REPORT INFORMATION
  Report Type: 
  Country: None (occurrence: None)
  Receive Date: 20090422
  Receipt Date: 20090422
  Transmission Date: 20091009
  Serious: Yes (Life-Threatening, Hospitalization, Other)
  Sender: FDA-Public Use
  Company Number: None

PATIENT
  Age: 76 Year
  Sex: Female
  Weight: 59.8748 kg

DRUGS (1)
  1. LEVAQUIN [Suspect]
     Indication: BLADDER CATHETERISATION
     Dosage: 500 OR 750 ONCE
     Dates: start: 20090403

REACTIONS (4)
  - FRACTURE [None]
  - LOSS OF CONSCIOUSNESS [None]
  - PAIN [None]
  - PULSE ABSENT [None]
